FAERS Safety Report 18192575 (Version 1)
Quarter: 2020Q3

REPORT INFORMATION
  Report Type: Spontaneous
  Country: JP (occurrence: JP)
  Receive Date: 20200825
  Receipt Date: 20200825
  Transmission Date: 20201103
  Serious: Yes (Hospitalization)
  Sender: FDA-Public Use
  Company Number: JP-MYLANLABS-2020M1073384

PATIENT
  Age: 72 Year
  Sex: Male

DRUGS (12)
  1. BETAMETHASONE. [Interacting]
     Active Substance: BETAMETHASONE
     Indication: PEMPHIGOID
     Dosage: 3.5 MILLIGRAM
     Route: 065
  2. BETAMETHASONE. [Interacting]
     Active Substance: BETAMETHASONE
     Dosage: 3 MILLIGRAM
     Route: 065
  3. PREDNISOLONE. [Interacting]
     Active Substance: PREDNISOLONE
     Dosage: 35 MILLIGRAM
     Route: 048
  4. METHYLPREDNISOLONE. [Interacting]
     Active Substance: METHYLPREDNISOLONE
     Indication: PEMPHIGOID
     Dosage: 500 MILLIGRAM, QD, HALF PULSE THERAPY
     Route: 042
  5. IMMUNOGLOBULIN                     /00025201/ [Suspect]
     Active Substance: HUMAN IMMUNOGLOBULIN G
     Indication: PEMPHIGOID
     Route: 042
  6. BETAMETHASONE. [Interacting]
     Active Substance: BETAMETHASONE
     Dosage: 2.5 MILLIGRAM
     Route: 065
  7. SODIUM VALPROATE [Concomitant]
     Active Substance: VALPROATE SODIUM
     Indication: EPILEPSY
     Route: 065
  8. PREDNISOLONE. [Suspect]
     Active Substance: PREDNISOLONE
     Indication: PEMPHIGOID
     Dosage: 50 MILLIGRAM, QD, 1 MG/KG
     Route: 048
  9. PHENYTOIN. [Interacting]
     Active Substance: PHENYTOIN
     Indication: EPILEPSY
     Route: 065
  10. PRIMIDONE. [Concomitant]
     Active Substance: PRIMIDONE
     Indication: EPILEPSY
     Route: 065
  11. PREDNISOLONE. [Interacting]
     Active Substance: PREDNISOLONE
     Dosage: 45 MILLIGRAM
     Route: 048
  12. PREDNISOLONE. [Interacting]
     Active Substance: PREDNISOLONE
     Dosage: 40 MILLIGRAM
     Route: 048

REACTIONS (2)
  - Labelled drug-drug interaction medication error [Unknown]
  - Drug ineffective [Unknown]
